FAERS Safety Report 23813841 (Version 1)
Quarter: 2024Q2

REPORT INFORMATION
  Report Type: Spontaneous
  Country: CN (occurrence: CN)
  Receive Date: 20240503
  Receipt Date: 20240503
  Transmission Date: 20240715
  Serious: Yes (Hospitalization)
  Sender: FDA-Public Use
  Company Number: CN-GLAXOSMITHKLINE-CN2024APC054303

PATIENT

DRUGS (2)
  1. BELIMUMAB [Suspect]
     Active Substance: BELIMUMAB
     Indication: Lupus nephritis
     Dosage: 600 MG (ONCE EVERY 2 WEEKS FOR FIRST 3 TIMES, AND ONCE EVERY 4 WEEKS)
     Route: 041
     Dates: start: 20220707, end: 20240407
  2. SODIUM CHLORIDE [Concomitant]
     Active Substance: SODIUM CHLORIDE
     Indication: Lupus nephritis
     Dosage: 100 ML, QD
     Route: 041
     Dates: start: 20220707, end: 20240407

REACTIONS (3)
  - Hepatic enzyme increased [Recovering/Resolving]
  - Rash erythematous [Recovering/Resolving]
  - Pruritus [Recovering/Resolving]

NARRATIVE: CASE EVENT DATE: 20240414
